FAERS Safety Report 10011160 (Version 1)
Quarter: 2014Q1

REPORT INFORMATION
  Report Type: Spontaneous
  Country: NO (occurrence: None)
  Receive Date: 20140311
  Receipt Date: 20140311
  Transmission Date: 20141002
  Serious: Yes (Other)
  Sender: FDA-Public Use
  Company Number: NO-20140001

PATIENT
  Sex: Female

DRUGS (2)
  1. DOTAREM [Suspect]
     Indication: NUCLEAR MAGNETIC RESONANCE IMAGING BRAIN
     Dosage: (1 IN 1 D) INTRAVENOUS (NOT OTHERWISE SPECIFIED)
     Route: 042
     Dates: start: 20130830, end: 20130830
  2. PROPOFOL (PROPOFOL) (PROPOFOL) [Concomitant]

REACTIONS (1)
  - Confusional state [None]
